FAERS Safety Report 8571438-6 (Version None)
Quarter: 2012Q3

REPORT INFORMATION
  Report Type: 
  Country: None (occurrence: None)
  Receive Date: 20120806
  Receipt Date: 20120727
  Transmission Date: 20120928
  Serious: Yes (Life-Threatening, Hospitalization)
  Sender: FDA-Public Use
  Company Number: GB-JNJFOC-20111204913

PATIENT
  Sex: Male
  Weight: 30 kg

DRUGS (14)
  1. PENICILLIN G POTASSIUM [Concomitant]
  2. METRONIDAZOLE [Concomitant]
  3. CIPROFLOXACIN [Concomitant]
  4. PIPERACILLIN AND TAZOBACTAM [Concomitant]
  5. MORPHINE SULFATE [Concomitant]
  6. INFLIXIMAB, RECOMBINANT [Suspect]
     Indication: INFLAMMATORY BOWEL DISEASE
     Route: 042
     Dates: start: 20100219, end: 20100317
  7. GENTAMICIN [Concomitant]
  8. PREDNISOLONE [Concomitant]
  9. ACETAMINOPHEN [Concomitant]
  10. METHYLPREDNISOLONE [Concomitant]
  11. VANCOMYCIN [Concomitant]
  12. PIPERACILLIN [Concomitant]
  13. AMOXICILLIN [Concomitant]
  14. MEROPENEM [Concomitant]

REACTIONS (3)
  - PNEUMOTHORAX [None]
  - POSTOPERATIVE WOUND INFECTION [None]
  - ACUTE RESPIRATORY DISTRESS SYNDROME [None]
